FAERS Safety Report 14565747 (Version 1)
Quarter: 2018Q1

REPORT INFORMATION
  Report Type: Spontaneous
  Country: US (occurrence: US)
  Receive Date: 20180222
  Receipt Date: 20180222
  Transmission Date: 20180509
  Serious: No
  Sender: FDA-Public Use
  Company Number: None

PATIENT
  Age: 83 Year
  Sex: Female

DRUGS (2)
  1. ENBREL [Suspect]
     Active Substance: ETANERCEPT
     Indication: BRONCHIECTASIS
     Dosage: 25MG/.5ML ONCE A WEEK SUBCUTANEOUSLY
     Route: 058
     Dates: start: 20160420
  2. ENBREL [Suspect]
     Active Substance: ETANERCEPT
     Indication: ASTHMA
     Dosage: 25MG/.5ML ONCE A WEEK SUBCUTANEOUSLY
     Route: 058
     Dates: start: 20160420

REACTIONS (1)
  - Herpes zoster [None]

NARRATIVE: CASE EVENT DATE: 20180221
